FAERS Safety Report 9899554 (Version 2)
Quarter: 2014Q1

REPORT INFORMATION
  Report Type: Spontaneous
  Country: IT (occurrence: IT)
  Receive Date: 20140214
  Receipt Date: 20140218
  Transmission Date: 20141002
  Serious: Yes (Hospitalization)
  Sender: FDA-Public Use
  Company Number: IT-PFIZER INC-2014043112

PATIENT
  Age: 43 Year
  Sex: Female

DRUGS (1)
  1. ALPRAZOLAM [Suspect]
     Dosage: 50 ML, TOTAL DOSAGE
     Route: 048
     Dates: start: 20131210, end: 20131210

REACTIONS (3)
  - Overdose [Unknown]
  - Drug abuse [Unknown]
  - Syncope [Unknown]
